FAERS Safety Report 16311174 (Version 1)
Quarter: 2019Q2

REPORT INFORMATION
  Report Type: Spontaneous
  Country: US (occurrence: US)
  Receive Date: 20190514
  Receipt Date: 20190514
  Transmission Date: 20190711
  Serious: No
  Sender: FDA-Public Use
  Company Number: US-MAYNE PHARMA-2018MYN000850

PATIENT

DRUGS (3)
  1. LEVOTHYROXINE. [Concomitant]
     Active Substance: LEVOTHYROXINE
     Indication: PRODUCT USED FOR UNKNOWN INDICATION
     Dosage: 13 MCG, AS DIRECTED
     Route: 048
     Dates: start: 2017
  2. LIOTHYRONINE [Suspect]
     Active Substance: LIOTHYRONINE
     Indication: THYROID HORMONES DECREASED
     Dosage: 25 MCG QAM AND QNOON, AND 12.5 MG QPM
     Route: 048
     Dates: start: 201804
  3. LIOTHYRONINE [Concomitant]
     Active Substance: LIOTHYRONINE
     Indication: THYROID HORMONES DECREASED
     Dosage: 25 MCG QAM AND QNOON, AND 12.5 MG QPM
     Route: 048
     Dates: start: 2013

REACTIONS (4)
  - Speech disorder [Unknown]
  - Product substitution issue [Unknown]
  - Asthenia [Unknown]
  - Bradyphrenia [Unknown]

NARRATIVE: CASE EVENT DATE: 2018
